FAERS Safety Report 19207444 (Version 1)
Quarter: 2021Q2

REPORT INFORMATION
  Report Type: Spontaneous
  Country: US (occurrence: US)
  Receive Date: 20210503
  Receipt Date: 20210503
  Transmission Date: 20210717
  Serious: Yes (Other)
  Sender: FDA-Public Use
  Company Number: US-NOVA LABORATORIES LIMITED-2110141

PATIENT
  Age: 5 Year
  Sex: Male

DRUGS (3)
  1. METHOTREXATE SODIUM. [Suspect]
     Active Substance: METHOTREXATE SODIUM
  2. VINCRISTINE [Suspect]
     Active Substance: VINCRISTINE
     Route: 065
  3. PURIXAN [Suspect]
     Active Substance: MERCAPTOPURINE
     Indication: PRODUCT USED FOR UNKNOWN INDICATION
     Route: 048
     Dates: end: 20150415

REACTIONS (2)
  - Drug-induced liver injury [Recovered/Resolved]
  - Drug metabolite level high [Recovered/Resolved]
